FAERS Safety Report 6468659-5 (Version None)
Quarter: 2009Q4

REPORT INFORMATION
  Report Type: 
  Country: None (occurrence: None)
  Receive Date: 20091119
  Receipt Date: 20090727
  Transmission Date: 20100525
  Serious: No
  Sender: FDA-Public Use
  Company Number: WAES 0907USA04822

PATIENT
  Age: 82 Year
  Sex: Male

DRUGS (1)
  1. JANUVIA [Suspect]
     Indication: DIABETES MELLITUS
     Dosage: 100MG/DAILY/PO
     Route: 048
     Dates: start: 20090724

REACTIONS (4)
  - ASTHENIA [None]
  - DIZZINESS [None]
  - FLUSHING [None]
  - OEDEMA PERIPHERAL [None]
